FAERS Safety Report 6289471-6 (Version None)
Quarter: 2009Q3

REPORT INFORMATION
  Report Type: 
  Country: None (occurrence: None)
  Receive Date: 20090730
  Receipt Date: 20090724
  Transmission Date: 20100115
  Serious: No
  Sender: FDA-Public Use
  Company Number: US-B.I. PHARMACEUTICALS,INC./RIDGEFIELD-2009-BP-08817BP

PATIENT

DRUGS (3)
  1. MIRAPEX [Suspect]
     Dosage: 3 MG
  2. MIRAPEX [Suspect]
     Dosage: 1.5 MG
  3. MIRAPEX [Suspect]
     Dosage: 2.25 MG

REACTIONS (2)
  - DRUG INEFFECTIVE [None]
  - OEDEMA [None]
